FAERS Safety Report 4327788-2 (Version None)
Quarter: 2004Q1

REPORT INFORMATION
  Report Type: 
  Country: None (occurrence: None)
  Receive Date: 20040325
  Receipt Date: 20040312
  Transmission Date: 20041129
  Serious: Yes (Death, Hospitalization, Other)
  Sender: FDA-Public Use
  Company Number: US-JNJFOC-20040104604

PATIENT
  Age: 42 Year
  Sex: Female

DRUGS (1)
  1. DURAGESIC [Suspect]
     Indication: PAIN
     Dosage: 50 UG/HR, 1 IN 72 HOUR, TRANSDERMAL
     Route: 062
     Dates: start: 20030910

REACTIONS (2)
  - DERMATITIS CONTACT [None]
  - MENINGITIS VIRAL [None]
